FAERS Safety Report 14318118 (Version 1)
Quarter: 2017Q4

REPORT INFORMATION
  Report Type: Spontaneous
  Country: US (occurrence: US)
  Receive Date: 20171222
  Receipt Date: 20171222
  Transmission Date: 20180321
  Serious: Yes (Other)
  Sender: FDA-Public Use
  Company Number: US-WEST-WARD PHARMACEUTICALS CORP.-US-H14001-17-05080

PATIENT
  Age: 94 Year
  Sex: Male
  Weight: 80.73 kg

DRUGS (2)
  1. OTHER ANTIGLAUCOMA PREPARATIONS [Concomitant]
     Indication: GLAUCOMA
     Route: 065
  2. FLUTICASONE PROPIONATE. [Suspect]
     Active Substance: FLUTICASONE PROPIONATE
     Indication: HYPERSENSITIVITY
     Route: 045
     Dates: start: 20171205, end: 20171205

REACTIONS (4)
  - Ocular hyperaemia [Not Recovered/Not Resolved]
  - Eye infection [Not Recovered/Not Resolved]
  - Accidental exposure to product [Recovered/Resolved]
  - Inappropriate schedule of drug administration [Recovered/Resolved]

NARRATIVE: CASE EVENT DATE: 20171205
